FAERS Safety Report 5872904-4 (Version None)
Quarter: 2008Q3

REPORT INFORMATION
  Report Type: 
  Country: None (occurrence: None)
  Receive Date: 20080905
  Receipt Date: 20080825
  Transmission Date: 20090109
  Serious: Yes (Other)
  Sender: FDA-Public Use
  Company Number: JP-PFIZER INC-2008062796

PATIENT
  Sex: Female

DRUGS (6)
  1. CHANTIX [Suspect]
     Indication: SMOKING CESSATION THERAPY
     Route: 048
     Dates: start: 20080610, end: 20080703
  2. FAMOTIDINE [Concomitant]
     Indication: STOMACH DISCOMFORT
     Route: 048
     Dates: start: 20080623, end: 20080707
  3. AZUCURENIN S [Concomitant]
     Indication: STOMACH DISCOMFORT
     Route: 048
     Dates: start: 20080623, end: 20080630
  4. ALL OTHER THERAPEUTIC PRODUCTS [Concomitant]
     Indication: STOMACH DISCOMFORT
     Route: 048
     Dates: start: 20080623, end: 20080630
  5. LIMAS [Concomitant]
     Route: 048
     Dates: start: 20080527
  6. ROHYPNOL [Concomitant]
     Route: 048
     Dates: start: 20020403

REACTIONS (2)
  - CHOKING SENSATION [None]
  - STOMACH DISCOMFORT [None]
